FAERS Safety Report 5644712-0 (Version None)
Quarter: 2008Q1

REPORT INFORMATION
  Report Type: 
  Country: None (occurrence: None)
  Receive Date: 20080229
  Receipt Date: 20070613
  Transmission Date: 20080703
  Serious: No
  Sender: FDA-Public Use
  Company Number: A0655880A

PATIENT
  Age: 63 Year
  Sex: Female

DRUGS (4)
  1. VALTREX [Suspect]
     Indication: GENITAL HERPES
     Dosage: 500MG SEE DOSAGE TEXT
     Route: 048
     Dates: start: 20070514
  2. SIMVASTATIN [Concomitant]
  3. FOSAMAX [Concomitant]
  4. VAGIFEM [Concomitant]

REACTIONS (4)
  - EYE INFLAMMATION [None]
  - EYE IRRITATION [None]
  - EYE PRURITUS [None]
  - OCULAR HYPERAEMIA [None]
